FAERS Safety Report 5381771-7 (Version None)
Quarter: 2007Q3

REPORT INFORMATION
  Report Type: 
  Country: None (occurrence: None)
  Receive Date: 20070709
  Receipt Date: 20070705
  Transmission Date: 20080115
  Serious: Yes (Life-Threatening, Other)
  Sender: FDA-Public Use
  Company Number: JP-BRISTOL-MYERS SQUIBB COMPANY-13805882

PATIENT
  Age: 60 Year
  Sex: Male
  Weight: 66 kg

DRUGS (18)
  1. BREVIBLOC [Suspect]
     Indication: TACHYCARDIA
     Route: 042
     Dates: start: 20060929, end: 20060929
  2. BREVIBLOC [Suspect]
     Indication: BLOOD PRESSURE INCREASED
     Route: 042
     Dates: start: 20060929, end: 20060929
  3. NEOSTIGMINE [Suspect]
     Indication: NEUROMUSCULAR BLOCKADE REVERSAL
     Route: 042
     Dates: start: 20060929, end: 20060929
  4. DIGOXIN [Suspect]
     Indication: ATRIAL FIBRILLATION
  5. FENTANEST [Suspect]
     Indication: ANALGESIC THERAPY
     Route: 042
     Dates: start: 20060929, end: 20060929
  6. AMLODIPINE [Concomitant]
  7. LOSARTAN POTASSIUM [Concomitant]
  8. FAMOTIDINE [Concomitant]
  9. NATEGLINIDE [Concomitant]
  10. ACARBOSE [Concomitant]
  11. NICARDIPINE HYDROCHLORIDE [Concomitant]
     Indication: BLOOD PRESSURE INCREASED
  12. NICARDIPINE HYDROCHLORIDE [Concomitant]
     Indication: TACHYCARDIA
  13. ATROPINE [Concomitant]
     Indication: CARDIOVERSION
  14. SEVORANE [Concomitant]
     Indication: GENERAL ANAESTHESIA
     Route: 055
     Dates: start: 20060929, end: 20060929
  15. NITROUS OXIDE W/ OXYGEN [Concomitant]
     Indication: MAINTENANCE OF ANAESTHESIA
     Route: 055
     Dates: start: 20060929, end: 20060929
  16. THIOPENTONE SODIUM [Concomitant]
     Indication: INDUCTION OF ANAESTHESIA
     Route: 042
     Dates: start: 20060929, end: 20060929
  17. VECURONIUM BROMIDE [Concomitant]
     Indication: HYPOTONIA
     Route: 042
     Dates: start: 20060929, end: 20060929
  18. CEFAZOLIN SODIUM [Concomitant]
     Indication: INFECTION PROPHYLAXIS
     Route: 042
     Dates: start: 20060929, end: 20060929

REACTIONS (2)
  - BRADYCARDIA [None]
  - CARDIAC ARREST [None]
